FAERS Safety Report 7334144-1 (Version None)
Quarter: 2011Q1

REPORT INFORMATION
  Report Type: 
  Country: None (occurrence: None)
  Receive Date: 20110307
  Receipt Date: 20110225
  Transmission Date: 20110831
  Serious: Yes (Hospitalization)
  Sender: FDA-Public Use
  Company Number: JP-CEPHALON-2011000990

PATIENT
  Age: 59 Year
  Sex: Male

DRUGS (1)
  1. BENDAMUSTINE HCL [Suspect]
     Indication: B-CELL LYMPHOMA
     Route: 041
     Dates: start: 20110120, end: 20110121

REACTIONS (1)
  - GASTROINTESTINAL PERFORATION [None]
